FAERS Safety Report 10350910 (Version 2)
Quarter: 2014Q3

REPORT INFORMATION
  Report Type: Report from Study
  Country: ES (occurrence: ES)
  Receive Date: 20140730
  Receipt Date: 20140911
  Transmission Date: 20150326
  Serious: Yes (Hospitalization, Other)
  Sender: FDA-Public Use
  Company Number: ES-VERTEX PHARMACEUTICALS INC-2014-003298

PATIENT

DRUGS (1)
  1. TELAPREVIR [Suspect]
     Active Substance: TELAPREVIR
     Indication: HEPATITIS C
     Route: 048

REACTIONS (18)
  - Sepsis [Unknown]
  - Pruritus [Unknown]
  - Tooth abscess [Unknown]
  - Insomnia [Unknown]
  - Thrombocytopenia [Recovered/Resolved]
  - Liver injury [Unknown]
  - Asthenia [Unknown]
  - Anorectal discomfort [Unknown]
  - Respiratory tract infection [Unknown]
  - White blood cell count decreased [Unknown]
  - Condition aggravated [Unknown]
  - Urinary tract infection [Unknown]
  - Skin reaction [Unknown]
  - Haemoglobin decreased [Recovered/Resolved]
  - Diarrhoea [Unknown]
  - Decreased appetite [Unknown]
  - Depression [Unknown]
  - Infection [Unknown]
